FAERS Safety Report 12651749 (Version 1)
Quarter: 2016Q3

REPORT INFORMATION
  Report Type: Spontaneous
  Country: GB (occurrence: GB)
  Receive Date: 20160815
  Receipt Date: 20160815
  Transmission Date: 20161109
  Serious: Yes (Hospitalization)
  Sender: FDA-Public Use
  Company Number: GB-PFIZER INC-2016374041

PATIENT
  Sex: Male
  Weight: 1.11 kg

DRUGS (5)
  1. PREDNISOLONE. [Suspect]
     Active Substance: PREDNISOLONE
     Dosage: 40 MG, DAILY
     Route: 064
  2. AZATHIOPRINE. [Suspect]
     Active Substance: AZATHIOPRINE
     Indication: INTERSTITIAL LUNG DISEASE
     Dosage: UNK
     Route: 064
  3. CYCLOPHOSPHAMIDE. [Suspect]
     Active Substance: CYCLOPHOSPHAMIDE
     Indication: INTERSTITIAL LUNG DISEASE
     Dosage: 500 MG, (6 PULSES AT 2 WEEKLY INTERVALS)
     Route: 064
  4. PREDNISOLONE. [Suspect]
     Active Substance: PREDNISOLONE
     Indication: INTERSTITIAL LUNG DISEASE
     Dosage: 30 MG, UNK
     Route: 064
  5. METHYLPREDNISOLONE SODIUM SUCCINATE. [Suspect]
     Active Substance: METHYLPREDNISOLONE SODIUM SUCCINATE
     Indication: INTERSTITIAL LUNG DISEASE
     Dosage: 1 G, UNK (ON THREE CONSECUTIVE DAYS FOLLOWED BY METHYLPREDNISOLONE)
     Route: 064

REACTIONS (5)
  - Maternal exposure during pregnancy [Recovering/Resolving]
  - Umbilical cord abnormality [Recovering/Resolving]
  - Foetal growth restriction [Recovering/Resolving]
  - Premature baby [Recovering/Resolving]
  - Foetal hypokinesia [Recovering/Resolving]
